FAERS Safety Report 20197631 (Version 1)
Quarter: 2021Q4

REPORT INFORMATION
  Report Type: Spontaneous
  Country: CA (occurrence: CA)
  Receive Date: 20211217
  Receipt Date: 20211217
  Transmission Date: 20220303
  Serious: Yes (Other)
  Sender: FDA-Public Use
  Company Number: CA-TEVA-2021-CA-1987555

PATIENT
  Age: 90 Year
  Sex: Female

DRUGS (13)
  1. HYDROCHLOROTHIAZIDE [Suspect]
     Active Substance: HYDROCHLOROTHIAZIDE
     Dosage: 12.5 MILLIGRAM DAILY;
     Route: 065
  2. CALCIUM CARBONATE [Concomitant]
     Active Substance: CALCIUM CARBONATE
  3. FUROSEMIDE [Concomitant]
     Active Substance: FUROSEMIDE
  4. HUMULIN R [Concomitant]
     Active Substance: INSULIN HUMAN
  5. INNOHEP [Concomitant]
     Active Substance: TINZAPARIN SODIUM
     Route: 058
  6. K-DUR [Concomitant]
     Active Substance: POTASSIUM CHLORIDE
  7. LAMISIL [Concomitant]
     Active Substance: TERBINAFINE HYDROCHLORIDE
  8. MAGNESIUM SULFATE [Concomitant]
     Active Substance: MAGNESIUM SULFATE
  9. METFORMIN [Concomitant]
     Active Substance: METFORMIN HYDROCHLORIDE
  10. METOPROLOL [Concomitant]
     Active Substance: METOPROLOL
     Route: 065
  11. PANTOPRAZOLE [Concomitant]
     Active Substance: PANTOPRAZOLE
  12. TYLENOL [Concomitant]
     Active Substance: ACETAMINOPHEN
  13. VITAMIN D3 [Concomitant]
     Active Substance: CHOLECALCIFEROL

REACTIONS (3)
  - Cardiac failure [Recovering/Resolving]
  - Hyponatraemia [Recovering/Resolving]
  - Inappropriate antidiuretic hormone secretion [Recovering/Resolving]
